FAERS Safety Report 19756227 (Version 1)
Quarter: 2021Q3

REPORT INFORMATION
  Report Type: Other
  Country: FR (occurrence: FR)
  Receive Date: 20210827
  Receipt Date: 20210827
  Transmission Date: 20211014
  Serious: Yes (Other)
  Sender: FDA-Public Use
  Company Number: FR-GE HEALTHCARE LIFE SCIENCES-2021CSU004303

PATIENT

DRUGS (8)
  1. VISIPAQUE [Suspect]
     Active Substance: IODIXANOL
     Indication: PRODUCT USED FOR UNKNOWN INDICATION
  2. MYOVIEW [Suspect]
     Active Substance: TECHNETIUM TC-99M TETROFOSMIN
     Indication: PRODUCT USED FOR UNKNOWN INDICATION
  3. VISIPAQUE [Suspect]
     Active Substance: IODIXANOL
     Indication: ANGIOCARDIOGRAM
     Dosage: 77 ML, SINGLE
     Route: 042
     Dates: start: 20210728, end: 20210728
  4. TECHNETIUM TC 99M [Concomitant]
     Active Substance: TECHNETIUM TC-99M
     Indication: SCAN MYOCARDIAL PERFUSION
     Dosage: UNK
     Dates: start: 20210729, end: 20210729
  5. HEPARINE SODIQUE [Suspect]
     Active Substance: HEPARIN SODIUM
     Indication: ANGIOCARDIOGRAM
     Dosage: 2000 IU
     Route: 042
     Dates: start: 20210728, end: 20210728
  6. TRINITRINE [Suspect]
     Active Substance: NITROGLYCERIN
     Indication: SCAN MYOCARDIAL PERFUSION
     Dosage: 1 DF
     Route: 060
     Dates: start: 20210729, end: 20210729
  7. RISORDAN [Suspect]
     Active Substance: ISOSORBIDE
     Indication: ANGIOCARDIOGRAM
     Dosage: 1 DF
     Route: 042
     Dates: start: 20210728, end: 20210728
  8. MYOVIEW [Suspect]
     Active Substance: TECHNETIUM TC-99M TETROFOSMIN
     Indication: SCAN MYOCARDIAL PERFUSION
     Dosage: 1 DF, SINGLE
     Route: 042
     Dates: start: 20210729, end: 20210729

REACTIONS (1)
  - Acute generalised exanthematous pustulosis [Recovered/Resolved]

NARRATIVE: CASE EVENT DATE: 20210729
